FAERS Safety Report 8035620-9 (Version None)
Quarter: 2012Q1

REPORT INFORMATION
  Report Type: 
  Country: None (occurrence: None)
  Receive Date: 20120111
  Receipt Date: 20120102
  Transmission Date: 20120608
  Serious: Yes (Hospitalization)
  Sender: FDA-Public Use
  Company Number: FR-JNJFOC-20120101110

PATIENT
  Age: 82 Year
  Sex: Female

DRUGS (10)
  1. RISPERDAL [Suspect]
     Indication: PRODUCT USED FOR UNKNOWN INDICATION
     Route: 065
     Dates: start: 20111112, end: 20111101
  2. OXAZEPAM [Concomitant]
     Route: 065
  3. ZOLPIDEM [Concomitant]
     Route: 065
  4. OXAZEPAM [Concomitant]
     Route: 065
     Dates: start: 20101001
  5. VALSARTAN  AND HYDROCHLOROTHIAZIDE [Concomitant]
     Route: 065
  6. LORAZEPAM [Concomitant]
     Route: 065
     Dates: start: 20111024
  7. AMLODIPINE BESYLATE [Concomitant]
     Route: 065
  8. LORAZEPAM [Concomitant]
     Route: 065
     Dates: end: 20101001
  9. LITHIUM CARBONATE [Concomitant]
     Route: 065
  10. EFFEXOR [Concomitant]
     Route: 065

REACTIONS (7)
  - ANXIETY [None]
  - RENAL FAILURE [None]
  - OVERDOSE [None]
  - FOLATE DEFICIENCY [None]
  - HYPOXIA [None]
  - NEUROLEPTIC MALIGNANT SYNDROME [None]
  - HYPOCAPNIA [None]
